FAERS Safety Report 9580841 (Version 1)
Quarter: 2013Q4

REPORT INFORMATION
  Report Type: Spontaneous
  Country: IN (occurrence: IN)
  Receive Date: 20131002
  Receipt Date: 20131002
  Transmission Date: 20140711
  Serious: Yes (Death)
  Sender: FDA-Public Use
  Company Number: IN-ROCHE-1283998

PATIENT
  Age: 28 Year
  Sex: Male

DRUGS (2)
  1. METALYSE [Suspect]
     Indication: MYOCARDIAL INFARCTION
     Dosage: 1 DAY THERAPY
     Route: 042
     Dates: start: 20130906, end: 20130906
  2. ENOXAPARIN [Concomitant]

REACTIONS (3)
  - Drug ineffective [Fatal]
  - Ventricular tachycardia [Fatal]
  - Cardiogenic shock [Fatal]
